FAERS Safety Report 8804604 (Version 1)
Quarter: 2012Q4

REPORT INFORMATION
  Report Type: 
  Country: DE (occurrence: DE)
  Receive Date: 20120924
  Receipt Date: 20120924
  Transmission Date: 20130627
  Serious: No
  Sender: FDA-Public Use
  Company Number: DE-009507513-1209DEU008168

PATIENT
  Age: 78 Year
  Sex: Male

DRUGS (1)
  1. REMERGIL SOLTAB [Suspect]
     Indication: DEPRESSION
     Dosage: 45 mg, UNK
     Route: 048

REACTIONS (1)
  - Electrocardiogram QT prolonged [Unknown]
